FAERS Safety Report 15778503 (Version 14)
Quarter: 2020Q3

REPORT INFORMATION
  Report Type: Report from Study
  Country: US (occurrence: US)
  Receive Date: 20181231
  Receipt Date: 20200819
  Transmission Date: 20201102
  Serious: Yes (Hospitalization)
  Sender: FDA-Public Use
  Company Number: US-ACTELION-A-NJ2018-169794

PATIENT
  Age: 67 Year
  Sex: Female
  Weight: 52.61 kg

DRUGS (6)
  1. VELETRI [Suspect]
     Active Substance: EPOPROSTENOL
     Dosage: UNK
     Route: 042
  2. VELETRI [Suspect]
     Active Substance: EPOPROSTENOL
     Dosage: 46 NG/KG, PER MIN
     Route: 042
  3. VELETRI [Suspect]
     Active Substance: EPOPROSTENOL
     Dosage: 40 NG/KG, PER MIN
     Route: 042
  4. VELETRI [Suspect]
     Active Substance: EPOPROSTENOL
     Dosage: 58 NG/KG, PER MIN
     Route: 042
  5. VELETRI [Suspect]
     Active Substance: EPOPROSTENOL
     Dosage: 44 NG/KG, PER MIN
     Route: 042
  6. VELETRI [Suspect]
     Active Substance: EPOPROSTENOL
     Indication: PULMONARY HYPERTENSION
     Dosage: 58 NG/KG, PER MIN
     Route: 042

REACTIONS (18)
  - Product dose omission issue [Unknown]
  - Diarrhoea [Unknown]
  - Pain in extremity [Recovering/Resolving]
  - Catheter site irritation [Recovered/Resolved]
  - Emergency care [Unknown]
  - Device alarm issue [Not Recovered/Not Resolved]
  - Thrombosis in device [Unknown]
  - Catheter management [Unknown]
  - Dyspnoea exertional [Not Recovered/Not Resolved]
  - Dyspnoea [Not Recovered/Not Resolved]
  - Device breakage [Unknown]
  - Pain in jaw [Unknown]
  - Catheter site erythema [Unknown]
  - Dermatitis contact [Unknown]
  - Catheter site haemorrhage [Unknown]
  - Illness [Unknown]
  - Blood pressure systolic decreased [Unknown]
  - Catheter site pruritus [Unknown]

NARRATIVE: CASE EVENT DATE: 20181217
